FAERS Safety Report 6006105-6 (Version None)
Quarter: 2008Q4

REPORT INFORMATION
  Report Type: 
  Country: None (occurrence: None)
  Receive Date: 20081216
  Receipt Date: 20081216
  Transmission Date: 20090506
  Serious: No
  Sender: FDA-Public Use
  Company Number: None

PATIENT
  Age: 54 Year
  Sex: Female
  Weight: 90.7194 kg

DRUGS (2)
  1. BUDEPRION XL 150 MG [Suspect]
     Indication: DEPRESSION
     Dosage: 150 MG BID PO
     Route: 048
     Dates: start: 20081028, end: 20081211
  2. BUDEPRION XL 150 MG [Suspect]
     Indication: SMOKING CESSATION THERAPY
     Dosage: 150 MG BID PO
     Route: 048
     Dates: start: 20081028, end: 20081211

REACTIONS (4)
  - COORDINATION ABNORMAL [None]
  - FEELING ABNORMAL [None]
  - GAIT DISTURBANCE [None]
  - MUSCULAR WEAKNESS [None]
